FAERS Safety Report 6618985-1 (Version None)
Quarter: 2010Q1

REPORT INFORMATION
  Report Type: 
  Country: None (occurrence: None)
  Receive Date: 20100308
  Receipt Date: 20100223
  Transmission Date: 20100710
  Serious: Yes (Hospitalization)
  Sender: FDA-Public Use
  Company Number: PHHY2010FR10392

PATIENT
  Age: 70 Year
  Sex: Male

DRUGS (10)
  1. RASILEZ [Suspect]
     Dosage: 150 MG, QD
     Route: 048
     Dates: start: 20091012, end: 20091030
  2. BUMEX [Interacting]
     Dosage: 6 MG, UNK
     Route: 048
     Dates: end: 20091030
  3. TERALITHE [Interacting]
     Dosage: 400 MG, BID
     Route: 048
     Dates: end: 20091030
  4. OLMESARTAN MEDOXOMIL [Interacting]
  5. SINTROM [Concomitant]
     Dosage: 4 MG PER DAY
  6. LEVOTHYROX [Concomitant]
     Dosage: 125 UG, QD
  7. NOVORAPID [Concomitant]
     Dosage: 23 IU PER DAY
  8. LANTUS [Concomitant]
     Dosage: 24 IU, QD
  9. EUPRESSYL [Concomitant]
     Dosage: 60 MG, BID
  10. FLECAINIDE [Concomitant]
     Dosage: 100 MG, QD

REACTIONS (5)
  - ANTIPSYCHOTIC DRUG LEVEL INCREASED [None]
  - DEHYDRATION [None]
  - DRUG INTERACTION [None]
  - RENAL FAILURE ACUTE [None]
  - TREMOR [None]
